FAERS Safety Report 8401123-2 (Version None)
Quarter: 2012Q2

REPORT INFORMATION
  Report Type: 
  Country: None (occurrence: None)
  Receive Date: 20120601
  Receipt Date: 20120529
  Transmission Date: 20120825
  Serious: No
  Sender: FDA-Public Use
  Company Number: US-PFIZER INC-2012129229

PATIENT
  Sex: Male
  Weight: 86 kg

DRUGS (6)
  1. METFORMIN [Concomitant]
     Dosage: UNK
  2. METOPROLOL [Concomitant]
     Dosage: UNK
  3. BENAZEPRIL [Concomitant]
     Dosage: UNK
  4. IBUPROFEN (ADVIL) [Suspect]
     Indication: PAIN
     Dosage: UNK, 3X/DAY
     Route: 048
     Dates: start: 20120301
  5. GLIPIZIDE [Concomitant]
     Dosage: UNK
  6. LYRICA [Suspect]
     Indication: PAIN
     Dosage: 200 MG, 3X/DAY
     Route: 048
     Dates: start: 20100701, end: 20120201

REACTIONS (3)
  - PAIN [None]
  - INSOMNIA [None]
  - DRUG INEFFECTIVE [None]
